FAERS Safety Report 6739504-5 (Version None)
Quarter: 2010Q2

REPORT INFORMATION
  Report Type: 
  Country: None (occurrence: None)
  Receive Date: 20100525
  Receipt Date: 20100521
  Transmission Date: 20101027
  Serious: Yes (Other)
  Sender: FDA-Public Use
  Company Number: US-RB-009260-10

PATIENT
  Age: 31 Year
  Sex: Female

DRUGS (3)
  1. SUBOXONE [Suspect]
     Route: 060
     Dates: start: 20081001, end: 20090201
  2. SUBOXONE [Suspect]
     Dosage: VARIOUS DOSING SCHEDULE
     Route: 060
     Dates: start: 20090201, end: 20100301
  3. METHADONE [Suspect]
     Dosage: TOOK 5 MG X 2 DAYS
     Route: 065
     Dates: start: 20090101, end: 20090101

REACTIONS (4)
  - DRUG EXPOSURE DURING PREGNANCY [None]
  - PREMATURE LABOUR [None]
  - PREMATURE SEPARATION OF PLACENTA [None]
  - VOMITING IN PREGNANCY [None]
